FAERS Safety Report 4823331-X (Version None)
Quarter: 2005Q4

REPORT INFORMATION
  Report Type: 
  Country: None (occurrence: None)
  Receive Date: 20051107
  Receipt Date: 20051027
  Transmission Date: 20060501
  Serious: Yes (Disabling, Other)
  Sender: FDA-Public Use
  Company Number: 2005135734

PATIENT
  Age: 44 Year
  Sex: Male

DRUGS (8)
  1. LYRICA [Suspect]
     Indication: NEURALGIA
     Dosage: SEE IMAGE
     Route: 048
     Dates: start: 20050426, end: 20050913
  2. LYRICA [Suspect]
     Indication: NEURALGIA
     Dosage: SEE IMAGE
     Route: 048
     Dates: start: 20050426, end: 20050913
  3. PROZAC [Concomitant]
  4. FLUOXETINE [Concomitant]
  5. LANSOPRAZOLE [Concomitant]
  6. SENNA (SENNA) [Concomitant]
  7. PARACETAMOL (PARACETAMOL) [Concomitant]
  8. BUPRENORPHINE (BUPRENORPHINE) [Concomitant]

REACTIONS (4)
  - DEPRESSION [None]
  - DRY MOUTH [None]
  - NAUSEA [None]
  - VOMITING [None]
